FAERS Safety Report 4980281-6 (Version None)
Quarter: 2006Q2

REPORT INFORMATION
  Report Type: 
  Country: None (occurrence: None)
  Receive Date: 20060420
  Receipt Date: 20060420
  Transmission Date: 20061013
  Serious: Yes (Death)
  Sender: FDA-Public Use
  Company Number: None

PATIENT
  Age: 30 Year
  Sex: Female

DRUGS (3)
  1. STAVUDINE [Suspect]
     Indication: HIV INFECTION
     Dosage: 30 MG BID PO
     Route: 048
     Dates: start: 20051028
  2. LAMIVUDINE [Suspect]
     Indication: HIV INFECTION
     Dosage: 150 MG BID PO
     Route: 048
     Dates: start: 20051028
  3. EFAVIRENZ [Suspect]
     Indication: HIV INFECTION
     Dosage: 600 MG QHS PO
     Route: 048
     Dates: start: 20051028

REACTIONS (13)
  - ACTIVITIES OF DAILY LIVING IMPAIRED [None]
  - ANAEMIA [None]
  - DRUG INTOLERANCE [None]
  - DRUG RESISTANCE [None]
  - DYSPHAGIA [None]
  - IMMUNE RECONSTITUTION SYNDROME [None]
  - LOWER RESPIRATORY TRACT INFECTION [None]
  - MENINGITIS TUBERCULOUS [None]
  - ORAL CANDIDIASIS [None]
  - PNEUMONIA BACTERIAL [None]
  - THERAPY NON-RESPONDER [None]
  - TUBERCULOSIS [None]
  - TUMOUR HAEMORRHAGE [None]
